FAERS Safety Report 5333190-7 (Version None)
Quarter: 2007Q2

REPORT INFORMATION
  Report Type: 
  Country: None (occurrence: None)
  Receive Date: 20070524
  Receipt Date: 20070521
  Transmission Date: 20071010
  Serious: Yes (Other)
  Sender: FDA-Public Use
  Company Number: FRWYE685521MAY07

PATIENT
  Age: 63 Year
  Sex: Male

DRUGS (3)
  1. EFFEXOR XR [Suspect]
     Indication: DEPRESSION
     Route: 048
     Dates: start: 20070101, end: 20070101
  2. LEXOMIL [Concomitant]
     Dosage: UNKNOWN
     Route: 048
  3. THERALENE [Concomitant]
     Indication: SLEEP DISORDER
     Dosage: UNKNOWN

REACTIONS (3)
  - BLADDER DISTENSION [None]
  - DYSURIA [None]
  - URINARY RETENTION [None]
